FAERS Safety Report 4375687-2 (Version None)
Quarter: 2004Q2

REPORT INFORMATION
  Report Type: 
  Country: None (occurrence: None)
  Receive Date: 20040607
  Receipt Date: 20040525
  Transmission Date: 20050107
  Serious: Yes (Death, Hospitalization)
  Sender: FDA-Public Use
  Company Number: US-JNJFOC-20040400362

PATIENT
  Age: 47 Year
  Sex: Female
  Weight: 68.0396 kg

DRUGS (4)
  1. REMICADE (INFLIXIMAB, RECOMBINANT) LYOPHILIZED POWDER [Suspect]
     Indication: RHEUMATOID ARTHRITIS
     Dosage: 200 MG , 1 IN 1 DAY, INTRAVENOUS
     Route: 042
     Dates: start: 20020604
  2. PREDNISONE [Concomitant]
  3. FOSAMAX [Concomitant]
  4. REMICADE (INFLIXIMAB, RECOMBINANT) LYOPHILIZED POWDER [Suspect]
     Indication: RHEUMATOID ARTHRITIS
     Dosage: 200 MG, 1 IN 1 DAY, INTRAVENOUS
     Route: 042
     Dates: start: 20020618

REACTIONS (6)
  - ASCITES [None]
  - BREAST CANCER [None]
  - BREAST CANCER METASTATIC [None]
  - METASTASES TO LIVER [None]
  - METASTASES TO LYMPH NODES [None]
  - TUBERCULOSIS [None]
